FAERS Safety Report 7671040-4 (Version None)
Quarter: 2011Q3

REPORT INFORMATION
  Report Type: 
  Country: None (occurrence: None)
  Receive Date: 20110805
  Receipt Date: 20110805
  Transmission Date: 20111222
  Serious: Yes (Other)
  Sender: FDA-Public Use
  Company Number: None

PATIENT
  Sex: Male
  Weight: 61.4 kg

DRUGS (1)
  1. IC DOCU 50 MG/5ML LIQUID QUALITEST/DIST: HI-TECH PHARMAC [Suspect]
     Indication: CONSTIPATION
     Dosage: 10 ML 2XDAY ORAL
     Route: 048
     Dates: start: 20110714

REACTIONS (3)
  - DIET REFUSAL [None]
  - PRODUCT TASTE ABNORMAL [None]
  - THROAT IRRITATION [None]
